FAERS Safety Report 15675462 (Version 1)
Quarter: 2018Q4

REPORT INFORMATION
  Report Type: Spontaneous
  Country: FR (occurrence: FR)
  Receive Date: 20181130
  Receipt Date: 20181130
  Transmission Date: 20190205
  Serious: Yes (Other)
  Sender: FDA-Public Use
  Company Number: FR-GLAXOSMITHKLINE-FR2018GSK182536

PATIENT
  Age: 56 Year
  Sex: Female
  Weight: 44 kg

DRUGS (6)
  1. RELVAR ELLIPTA [Suspect]
     Active Substance: FLUTICASONE FUROATE\VILANTEROL TRIFENATATE
     Indication: CHRONIC OBSTRUCTIVE PULMONARY DISEASE
     Dosage: 1 PUFF(S), 1D
     Route: 055
     Dates: start: 201611, end: 201611
  2. LYSANXIA [Suspect]
     Active Substance: PRAZEPAM
     Indication: PRODUCT USED FOR UNKNOWN INDICATION
     Dosage: UNK
  3. INCRUSE ELLIPTA [Suspect]
     Active Substance: UMECLIDINIUM BROMIDE
     Indication: CHRONIC OBSTRUCTIVE PULMONARY DISEASE
     Dosage: 1 PUFF(S), 1D
     Route: 055
     Dates: start: 201611, end: 201611
  4. SINGULAIR [Concomitant]
     Active Substance: MONTELUKAST SODIUM
     Indication: PRODUCT USED FOR UNKNOWN INDICATION
     Dosage: 1 DF, 1D
     Route: 048
  5. CLARYTINE [Concomitant]
     Indication: PRODUCT USED FOR UNKNOWN INDICATION
     Dosage: UNK
     Route: 048
  6. TRIFLUCAN [Suspect]
     Active Substance: FLUCONAZOLE
     Indication: ORAL CANDIDIASIS
     Dosage: UNK

REACTIONS (31)
  - Confusional state [Not Recovered/Not Resolved]
  - Tooth discolouration [Not Recovered/Not Resolved]
  - Swollen tongue [Not Recovered/Not Resolved]
  - Burning mouth syndrome [Not Recovered/Not Resolved]
  - Oral discomfort [Unknown]
  - Weight decreased [Not Recovered/Not Resolved]
  - Oral fungal infection [Unknown]
  - Mouth swelling [Unknown]
  - Tongue discomfort [Not Recovered/Not Resolved]
  - Oral disorder [Unknown]
  - Feeding disorder [Not Recovered/Not Resolved]
  - Intestinal obstruction [Unknown]
  - Cerebral disorder [Not Recovered/Not Resolved]
  - Photophobia [Not Recovered/Not Resolved]
  - Ill-defined disorder [Not Recovered/Not Resolved]
  - Salivary hypersecretion [Not Recovered/Not Resolved]
  - Bedridden [Unknown]
  - Tremor [Unknown]
  - Dysgeusia [Not Recovered/Not Resolved]
  - Alopecia [Not Recovered/Not Resolved]
  - Vomiting [Unknown]
  - Skin discolouration [Unknown]
  - Eructation [Unknown]
  - Oral candidiasis [Not Recovered/Not Resolved]
  - Chills [Not Recovered/Not Resolved]
  - Oral pain [Not Recovered/Not Resolved]
  - Influenza [Not Recovered/Not Resolved]
  - Oral mucosal erythema [Not Recovered/Not Resolved]
  - Oropharyngeal plaque [Unknown]
  - Pharyngeal disorder [Not Recovered/Not Resolved]
  - Malnutrition [Not Recovered/Not Resolved]

NARRATIVE: CASE EVENT DATE: 201611
